FAERS Safety Report 7913646-0 (Version None)
Quarter: 2011Q4

REPORT INFORMATION
  Report Type: 
  Country: None (occurrence: None)
  Receive Date: 20111115
  Receipt Date: 20111107
  Transmission Date: 20120403
  Serious: Yes (Other)
  Sender: FDA-Public Use
  Company Number: US-CELGENEUS-163-21880-11111192

PATIENT
  Sex: Male
  Weight: 89.529 kg

DRUGS (1)
  1. REVLIMID [Suspect]
     Indication: MULTIPLE MYELOMA
     Dosage: 25 MILLIGRAM
     Route: 048
     Dates: start: 20110601

REACTIONS (7)
  - GAIT DISTURBANCE [None]
  - PAIN [None]
  - HAEMATOCHEZIA [None]
  - MUSCLE SPASMS [None]
  - INSOMNIA [None]
  - FATIGUE [None]
  - JOINT SWELLING [None]
